FAERS Safety Report 20305710 (Version 7)
Quarter: 2025Q1

REPORT INFORMATION
  Report Type: Spontaneous
  Country: FR (occurrence: FR)
  Receive Date: 20220106
  Receipt Date: 20250205
  Transmission Date: 20250408
  Serious: Yes (Hospitalization, Disabling, Other)
  Sender: NOVARTIS
  Company Number: FR-NOVARTISPH-NVSC2021FR301883

PATIENT
  Age: 33 Year
  Sex: Male

DRUGS (58)
  1. TEGRETOL [Suspect]
     Active Substance: CARBAMAZEPINE
     Indication: Headache
     Route: 065
     Dates: start: 20200222
  2. TEGRETOL [Suspect]
     Active Substance: CARBAMAZEPINE
     Route: 065
     Dates: start: 20200224
  3. KETOPROFEN [Concomitant]
     Active Substance: KETOPROFEN
     Indication: Product used for unknown indication
     Route: 065
  4. SUMATRIPTAN [Concomitant]
     Active Substance: SUMATRIPTAN
     Indication: Product used for unknown indication
     Route: 065
  5. TRAMADOL [Concomitant]
     Active Substance: TRAMADOL
     Indication: Product used for unknown indication
     Dosage: 50 MG, TID
     Route: 065
  6. TRAMADOL [Concomitant]
     Active Substance: TRAMADOL
     Route: 065
     Dates: start: 20220929
  7. CEFOTAXIME;ONDANSETRON [Concomitant]
     Indication: Product used for unknown indication
     Route: 042
     Dates: start: 20200319
  8. VANCOMYCIN [Concomitant]
     Active Substance: VANCOMYCIN
     Indication: Product used for unknown indication
     Dosage: 1 G, QID
     Route: 042
     Dates: start: 20200319
  9. MIDAZOLAM MERCK [Concomitant]
     Indication: Product used for unknown indication
     Route: 042
  10. SUFENTANIL ACTAVIS [Concomitant]
     Indication: Product used for unknown indication
     Route: 042
  11. NORADRENALINE PCH [Concomitant]
     Indication: Product used for unknown indication
     Route: 042
  12. PANTOPRAZOLE [Concomitant]
     Active Substance: PANTOPRAZOLE
     Indication: Product used for unknown indication
     Dosage: 40 MG, Q24H
     Route: 042
  13. FRESUBIN [Concomitant]
     Active Substance: AMINO ACIDS\DEXTROSE\ELECTROLYTES NOS\SOYBEAN OIL\VITAMINS
     Indication: Product used for unknown indication
     Dosage: 900 ML, Q24H
     Route: 065
  14. VITAMIN A [Concomitant]
     Active Substance: VITAMIN A
     Indication: Product used for unknown indication
     Route: 065
  15. VITAMIN A [Concomitant]
     Active Substance: VITAMIN A
     Route: 065
     Dates: start: 20240115
  16. LACTATED RINGERS SOLUTION [Concomitant]
     Active Substance: CALCIUM CHLORIDE\POTASSIUM CHLORIDE\SODIUM CHLORIDE\SODIUM LACTATE
     Indication: Product used for unknown indication
     Route: 065
  17. VITAMIN K1 [Concomitant]
     Active Substance: PHYTONADIONE
     Indication: Product used for unknown indication
     Route: 065
  18. LEUCOVORIN CALCIUM [Concomitant]
     Active Substance: LEUCOVORIN CALCIUM
     Indication: Product used for unknown indication
     Dosage: 50 MG, QW (ON WEDNESDAY)
     Route: 065
  19. SODIUM CHLORIDE [Concomitant]
     Active Substance: SODIUM CHLORIDE
     Indication: Product used for unknown indication
     Route: 065
  20. VASELINE PURE [Concomitant]
     Active Substance: PETROLATUM
     Indication: Product used for unknown indication
     Dosage: UNK UNK, QD
     Route: 065
  21. PROPRANOLOL HYDROCHLORIDE [Concomitant]
     Active Substance: PROPRANOLOL HYDROCHLORIDE
     Indication: Product used for unknown indication
     Dosage: 40 MG, TID
     Route: 065
  22. DAFALGAN [Concomitant]
     Active Substance: ACETAMINOPHEN
     Indication: Product used for unknown indication
     Route: 048
  23. ALPRAZOLAM [Concomitant]
     Active Substance: ALPRAZOLAM
     Indication: Product used for unknown indication
     Dosage: 0.25 MG, QD (AT BEDTIME)
     Route: 065
  24. LOVENOX [Concomitant]
     Active Substance: ENOXAPARIN SODIUM
     Indication: Product used for unknown indication
     Route: 058
  25. HYALURONATE SODIUM [Concomitant]
     Active Substance: HYALURONATE SODIUM
     Indication: Product used for unknown indication
     Dosage: 1 DOSAGE FORM, QID
     Route: 065
  26. HYALURONATE SODIUM [Concomitant]
     Active Substance: HYALURONATE SODIUM
     Route: 065
     Dates: start: 20201016
  27. HYALURONATE SODIUM [Concomitant]
     Active Substance: HYALURONATE SODIUM
     Route: 065
     Dates: start: 20210115
  28. HYALURONATE SODIUM [Concomitant]
     Active Substance: HYALURONATE SODIUM
     Route: 065
     Dates: start: 20210604
  29. HYALURONATE SODIUM [Concomitant]
     Active Substance: HYALURONATE SODIUM
     Route: 065
     Dates: start: 20220630
  30. HYALURONATE SODIUM [Concomitant]
     Active Substance: HYALURONATE SODIUM
     Dosage: 1 DRP, 6QD (IN THE 2 EYES DURING 6 MONTHS)
     Route: 065
     Dates: start: 20220704
  31. REFRESH CELLUVISC [Concomitant]
     Active Substance: CARBOXYMETHYLCELLULOSE SODIUM
     Indication: Product used for unknown indication
     Dosage: 1 DOSAGE FORM, QID
     Route: 065
  32. REFRESH CELLUVISC [Concomitant]
     Active Substance: CARBOXYMETHYLCELLULOSE SODIUM
     Route: 065
     Dates: start: 20210503
  33. CYCLOSPORINE [Concomitant]
     Active Substance: CYCLOSPORINE
     Indication: Product used for unknown indication
     Dosage: 1 DRP, BID (0.05%) (IN THE 2 EYES DURING 6 MONTHS)
     Route: 065
     Dates: start: 20200612
  34. CYCLOSPORINE [Concomitant]
     Active Substance: CYCLOSPORINE
     Dosage: 1 DRP, BID (2%) ( IN THE 2 EYES DURING 6 MONTHS)
     Route: 065
     Dates: start: 20201016
  35. CYCLOSPORINE [Concomitant]
     Active Substance: CYCLOSPORINE
     Dosage: 1 DRP, BID (2%) (IN THE 2 EYES DURING 6 MONTHS) (2%)
     Route: 065
     Dates: start: 20210115
  36. CYCLOSPORINE [Concomitant]
     Active Substance: CYCLOSPORINE
     Dosage: 1 DRP, BID (2%) (IN THE 2 EYES DURING 6 MONTHS)
     Route: 065
     Dates: start: 20210604
  37. CYCLOSPORINE [Concomitant]
     Active Substance: CYCLOSPORINE
     Dosage: 1 DRP, BID (2%) (IN THE 2 EYES DURING 6 MONTHS)
     Route: 065
     Dates: start: 20210610
  38. MELATONIN [Concomitant]
     Active Substance: MELATONIN
     Indication: Product used for unknown indication
     Route: 065
  39. DOLIPRANE [Concomitant]
     Active Substance: ACETAMINOPHEN
     Indication: Product used for unknown indication
     Route: 065
  40. XYLOCAINE W/GLUCOSE [Concomitant]
     Indication: Product used for unknown indication
     Route: 065
  41. NYSTATIN [Concomitant]
     Active Substance: NYSTATIN
     Indication: Product used for unknown indication
     Route: 065
  42. CLINUTREN HP ENERGY [Concomitant]
     Indication: Product used for unknown indication
     Dosage: UNK UNK, TID
     Route: 065
  43. AUTOLOGOUS HUMAN CORNEAL EPITHELIAL CELLS [Concomitant]
     Active Substance: AUTOLOGOUS HUMAN CORNEAL EPITHELIAL CELLS
     Indication: Product used for unknown indication
     Dosage: UNK, QID
     Route: 065
  44. RAMIPRIL;VALSARTAN [Concomitant]
     Indication: Product used for unknown indication
     Route: 065
  45. Dexeryl [Concomitant]
     Indication: Product used for unknown indication
     Route: 065
  46. TOBRAMYCIN [Concomitant]
     Active Substance: TOBRAMYCIN
     Indication: Product used for unknown indication
     Dosage: 1 DRP, 10QD (1 DROP, 10 TIMES/DAY IN THE 2 EYES DURING 7 DAYS)
     Route: 065
     Dates: start: 20200610
  47. TOBRAMYCIN [Concomitant]
     Active Substance: TOBRAMYCIN
     Route: 065
  48. VANCOMYCIN [Concomitant]
     Active Substance: VANCOMYCIN
     Indication: Product used for unknown indication
     Dosage: 50 MG, QD
     Route: 065
  49. GENTAMICIN [Concomitant]
     Active Substance: GENTAMICIN
     Indication: Product used for unknown indication
     Route: 065
  50. PIPERACILLIN SODIUM [Concomitant]
     Active Substance: PIPERACILLIN SODIUM
     Indication: Product used for unknown indication
     Route: 065
  51. Flucon [Concomitant]
     Indication: Product used for unknown indication
     Dosage: 1 DRP, TID (IN THE RIGHT EYE DURING 7 DAYS)
     Route: 065
     Dates: start: 20201016
  52. Flucon [Concomitant]
     Dosage: 1 DRP, BID (DURING 7 DAYS)
     Route: 065
     Dates: start: 20201016
  53. Flucon [Concomitant]
     Route: 065
  54. TOBREX [Concomitant]
     Active Substance: TOBRAMYCIN
     Indication: Product used for unknown indication
     Dosage: 1 DRP, 6QD (DURING 7 DAY)
     Route: 065
     Dates: start: 20220704
  55. TOBREX [Concomitant]
     Active Substance: TOBRAMYCIN
     Dosage: 1 DRP, QID (THE LEFT EYE DURING 1 MONTH)
     Route: 065
  56. TOBREX [Concomitant]
     Active Substance: TOBRAMYCIN
     Route: 065
     Dates: start: 20220808
  57. RETINOL [Concomitant]
     Active Substance: RETINOL
     Indication: Product used for unknown indication
     Route: 065
     Dates: start: 20220704
  58. BORIC ACID\SODIUM BORATE [Concomitant]
     Active Substance: BORIC ACID\SODIUM BORATE
     Indication: Product used for unknown indication
     Route: 065
     Dates: start: 20220704

REACTIONS (52)
  - Pyrexia [Unknown]
  - Skin ulcer [Unknown]
  - Rash vesicular [Unknown]
  - Toxic epidermal necrolysis [Unknown]
  - Acute respiratory distress syndrome [Unknown]
  - Acute kidney injury [Unknown]
  - Conjunctivitis [Unknown]
  - Ulcerative keratitis [Unknown]
  - Candida infection [Unknown]
  - Malnutrition [Unknown]
  - Dysphagia [Unknown]
  - Eye abscess [Unknown]
  - Corneal abscess [Unknown]
  - Malaise [Unknown]
  - Sepsis [Recovering/Resolving]
  - Hypovolaemic shock [Unknown]
  - Septic shock [Unknown]
  - Abdominal pain [Unknown]
  - Drug ineffective [Unknown]
  - Amblyopia [Unknown]
  - Iris adhesions [Unknown]
  - Conjunctival hyperaemia [Unknown]
  - Dyspnoea [Recovering/Resolving]
  - Restrictive pulmonary disease [Recovering/Resolving]
  - Laryngeal discomfort [Not Recovered/Not Resolved]
  - Chest pain [Not Recovered/Not Resolved]
  - Mental disorder [Not Recovered/Not Resolved]
  - Ulnar nerve injury [Unknown]
  - Motor dysfunction [Unknown]
  - Mobility decreased [Unknown]
  - Stevens-Johnson syndrome [Unknown]
  - Symblepharon [Unknown]
  - Pericardial effusion [Unknown]
  - Stomatitis [Unknown]
  - Ocular discomfort [Unknown]
  - Macule [Unknown]
  - Eye pain [Unknown]
  - Anxiety disorder [Unknown]
  - Photophobia [Unknown]
  - Tachycardia [Unknown]
  - Insomnia [Unknown]
  - Nightmare [Unknown]
  - Emotional disorder [Unknown]
  - Behaviour disorder [Unknown]
  - Sleep disorder [Unknown]
  - Corneal scar [Unknown]
  - Limbal stem cell deficiency [Unknown]
  - Eye injury [Unknown]
  - Mood altered [Unknown]
  - Onychalgia [Unknown]
  - Loss of personal independence in daily activities [Unknown]
  - Gait disturbance [Unknown]

NARRATIVE: CASE EVENT DATE: 20200312
